FAERS Safety Report 7108981-2 (Version None)
Quarter: 2010Q4

REPORT INFORMATION
  Report Type: 
  Country: None (occurrence: None)
  Receive Date: 20101117
  Receipt Date: 20101104
  Transmission Date: 20110411
  Serious: Yes (Hospitalization)
  Sender: FDA-Public Use
  Company Number: PHHY2010US74812

PATIENT
  Sex: Female

DRUGS (2)
  1. EXELON [Suspect]
     Dosage: 9.5 MG
     Route: 062
  2. EXELON [Suspect]
     Dosage: 2 X 4.6 MG
     Route: 062

REACTIONS (1)
  - CELLULITIS [None]
